FAERS Safety Report 8725412 (Version 3)
Quarter: 2012Q4

REPORT INFORMATION
  Report Type: Report from Study
  Country: US (occurrence: US)
  Receive Date: 20120815
  Receipt Date: 20121219
  Transmission Date: 20130627
  Serious: Yes (Hospitalization)
  Sender: FDA-Public Use
  Company Number: US-US-EMD SERONO, INC.-7153743

PATIENT
  Sex: Male

DRUGS (3)
  1. REBIF [Suspect]
     Indication: MULTIPLE SCLEROSIS
     Route: 058
     Dates: start: 201201
  2. PERCOCET [Concomitant]
     Indication: NECK PAIN
  3. PERCOCET [Concomitant]
     Indication: BACK PAIN

REACTIONS (1)
  - Incision site complication [Not Recovered/Not Resolved]
